FAERS Safety Report 6976998-4 (Version None)
Quarter: 2010Q3

REPORT INFORMATION
  Report Type: 
  Country: None (occurrence: None)
  Receive Date: 20100910
  Receipt Date: 20100830
  Transmission Date: 20110219
  Serious: Yes (Disabling, Other)
  Sender: FDA-Public Use
  Company Number: US-WYE-H17225110

PATIENT
  Sex: Female

DRUGS (4)
  1. EFFEXOR [Suspect]
     Indication: ANXIETY
     Dosage: UNKNOWN
     Dates: start: 20020101
  2. EFFEXOR [Suspect]
     Indication: DEPRESSION
  3. EFFEXOR [Suspect]
     Indication: MENOPAUSAL SYMPTOMS
  4. LYRICA [Suspect]
     Dosage: UNKNOWN DOSE, TEMPORARILY DISCONTINUED, RESUMED THERAPY AT A LOWER 50 MG DOSE ON UNSPECIFIED DATE

REACTIONS (10)
  - ANEURYSM [None]
  - ANXIETY [None]
  - CONDITION AGGRAVATED [None]
  - DEPRESSION [None]
  - DIZZINESS [None]
  - IMPAIRED WORK ABILITY [None]
  - MACULAR DEGENERATION [None]
  - PHOTOPSIA [None]
  - ROAD TRAFFIC ACCIDENT [None]
  - WEIGHT INCREASED [None]
